FAERS Safety Report 4285200-6 (Version None)
Quarter: 2004Q1

REPORT INFORMATION
  Report Type: 
  Country: None (occurrence: None)
  Receive Date: 20040204
  Receipt Date: 20040128
  Transmission Date: 20041129
  Serious: Yes (Hospitalization)
  Sender: FDA-Public Use
  Company Number: US-ROCHE-357606

PATIENT
  Age: 41 Year
  Sex: Male
  Weight: 72.6 kg

DRUGS (2)
  1. FUZEON [Suspect]
     Indication: HIV INFECTION
     Route: 058
     Dates: start: 20031207
  2. COUMADIN [Concomitant]
     Indication: THROMBOSIS
     Route: 048
     Dates: start: 20020615, end: 20031215

REACTIONS (4)
  - INJECTION SITE ERYTHEMA [None]
  - INJECTION SITE PAIN [None]
  - INJECTION SITE REACTION [None]
  - THROMBOSIS [None]
